FAERS Safety Report 5338691-3 (Version None)
Quarter: 2007Q2

REPORT INFORMATION
  Report Type: 
  Country: None (occurrence: None)
  Receive Date: 20070530
  Receipt Date: 20070525
  Transmission Date: 20071010
  Serious: Yes (Other)
  Sender: FDA-Public Use
  Company Number: A0653011A

PATIENT
  Age: 56 Year
  Sex: Female

DRUGS (6)
  1. VALTREX [Suspect]
     Dosage: 500MG PER DAY
     Route: 048
  2. DIOVAN [Concomitant]
  3. ASPIRIN [Concomitant]
  4. CALCIUM CHLORIDE [Concomitant]
  5. ASCORBIC ACID [Concomitant]
  6. SPORANOX [Concomitant]

REACTIONS (2)
  - BLINDNESS [None]
  - VISION BLURRED [None]
